FAERS Safety Report 5786125-7 (Version None)
Quarter: 2008Q2

REPORT INFORMATION
  Report Type: 
  Country: None (occurrence: None)
  Receive Date: 20080624
  Receipt Date: 20080616
  Transmission Date: 20081010
  Serious: Yes (Hospitalization)
  Sender: FDA-Public Use
  Company Number: FR-ASTRAZENECA-2008CG00944

PATIENT
  Age: 29358 Day
  Sex: Male

DRUGS (11)
  1. NEXIUM [Suspect]
     Route: 048
  2. LOVENOX [Suspect]
     Indication: COLOSTOMY
     Route: 065
     Dates: start: 20080516, end: 20080523
  3. DROLEPTAN [Concomitant]
     Indication: COLOSTOMY
  4. VOGALENE [Concomitant]
     Indication: COLOSTOMY
  5. MORPHINE [Concomitant]
     Indication: COLOSTOMY
  6. AMLOR [Concomitant]
  7. FENOFIBRATE [Concomitant]
  8. DEPAKENE [Concomitant]
  9. VALSARTAN [Concomitant]
  10. SMECTA [Concomitant]
  11. ACETAMINOPHEN [Concomitant]

REACTIONS (1)
  - VASCULAR PURPURA [None]
